FAERS Safety Report 17545348 (Version 1)
Quarter: 2020Q1

REPORT INFORMATION
  Report Type: Spontaneous
  Country: US (occurrence: US)
  Receive Date: 20200314
  Receipt Date: 20200314
  Transmission Date: 20200409
  Serious: No
  Sender: FDA-Public Use
  Company Number: None

PATIENT
  Age: 44 Year
  Sex: Female
  Weight: 103.5 kg

DRUGS (15)
  1. METFORMIN [Concomitant]
     Active Substance: METFORMIN HYDROCHLORIDE
  2. VITAMIN B12 [Concomitant]
     Active Substance: CYANOCOBALAMIN
  3. ALIGN [Concomitant]
     Active Substance: BIFIDOBACTERIUM LONGUM SUBSP. INFANTIS
  4. CYMBALTA [Concomitant]
     Active Substance: DULOXETINE HYDROCHLORIDE
  5. PREGABLIN (LYRICA) [Concomitant]
  6. VITAMIN D3 [Concomitant]
     Active Substance: CHOLECALCIFEROL
  7. VITAMIN C [Concomitant]
     Active Substance: ASCORBIC ACID
  8. DESONIDE. [Concomitant]
     Active Substance: DESONIDE
  9. CLOBETASOL [Concomitant]
     Active Substance: CLOBETASOL
  10. MAGNESIUM (CITRATE) [Concomitant]
  11. LEFLUNOMIDE. [Suspect]
     Active Substance: LEFLUNOMIDE
  12. PROOMEGA [Concomitant]
  13. CIMZIA [Suspect]
     Active Substance: CERTOLIZUMAB PEGOL
     Indication: PSORIATIC ARTHROPATHY
     Dosage: ?          QUANTITY:2 INJECTION(S);OTHER FREQUENCY:EVERY 2 WEEKS;?
     Route: 058
     Dates: start: 20200229, end: 20200314
  14. PREMARIN [Concomitant]
     Active Substance: ESTROGENS, CONJUGATED
  15. MERIVA SF [Concomitant]

REACTIONS (5)
  - Dyspnoea [None]
  - Chest discomfort [None]
  - Ventricular extrasystoles [None]
  - Palpitations [None]
  - Cough [None]

NARRATIVE: CASE EVENT DATE: 20200301
